FAERS Safety Report 17910451 (Version 1)
Quarter: 2020Q2

REPORT INFORMATION
  Report Type: Spontaneous
  Country: US (occurrence: US)
  Receive Date: 20200618
  Receipt Date: 20200618
  Transmission Date: 20200714
  Serious: Yes (Hospitalization, Other)
  Sender: FDA-Public Use
  Company Number: US-GILEAD-2020-0473164

PATIENT
  Age: 56 Year
  Sex: Male
  Weight: 125.62 kg

DRUGS (1)
  1. REMDESIVIR. [Suspect]
     Active Substance: REMDESIVIR
     Indication: COVID-19
     Dosage: 100 MG, QD
     Route: 042
     Dates: start: 20200611, end: 20200612

REACTIONS (2)
  - Acute kidney injury [Unknown]
  - Creatinine renal clearance increased [Unknown]

NARRATIVE: CASE EVENT DATE: 20200611
